FAERS Safety Report 21492730 (Version 7)
Quarter: 2023Q2

REPORT INFORMATION
  Report Type: Report from Study
  Country: US (occurrence: US)
  Receive Date: 20221021
  Receipt Date: 20230526
  Transmission Date: 20230722
  Serious: No
  Sender: FDA-Public Use
  Company Number: US-NOVARTISTESTPH-NVSC2022US237637

PATIENT
  Sex: Female

DRUGS (3)
  1. COSENTYX [Suspect]
     Active Substance: SECUKINUMAB
     Indication: Psoriasis
     Dosage: 150 MG, QW (3 DOSE)
     Route: 058
     Dates: start: 20221004
  2. COSENTYX [Suspect]
     Active Substance: SECUKINUMAB
     Indication: Psoriatic arthropathy
     Dosage: 300 MG, QMO
     Route: 058
  3. COSENTYX [Suspect]
     Active Substance: SECUKINUMAB
     Dosage: 300 MG, QW
     Route: 058

REACTIONS (16)
  - Neck pain [Not Recovered/Not Resolved]
  - Back pain [Not Recovered/Not Resolved]
  - Pain in extremity [Unknown]
  - Arthralgia [Unknown]
  - Scab [Unknown]
  - Pain [Not Recovered/Not Resolved]
  - Rotator cuff syndrome [Not Recovered/Not Resolved]
  - Labrune syndrome [Not Recovered/Not Resolved]
  - Tendon injury [Not Recovered/Not Resolved]
  - Drug ineffective [Unknown]
  - Myalgia [Unknown]
  - Rhinalgia [Unknown]
  - Oral disorder [Unknown]
  - Blister [Unknown]
  - Tendon pain [Unknown]
  - Trigeminal neuralgia [Unknown]
